FAERS Safety Report 6369427-5 (Version None)
Quarter: 2009Q3

REPORT INFORMATION
  Report Type: 
  Country: None (occurrence: None)
  Receive Date: 20090917
  Receipt Date: 20090910
  Transmission Date: 20100115
  Serious: Yes (Hospitalization)
  Sender: FDA-Public Use
  Company Number: 2008AL004838

PATIENT
  Age: 69 Year
  Sex: Female

DRUGS (26)
  1. DIGOXIN [Suspect]
     Dosage: 0.25MG, DAILY, PO
     Route: 048
  2. DIGOXIN [Suspect]
     Dosage: 0.125MG, PO
     Route: 048
  3. TARKA [Concomitant]
  4. VOLTAREN-XR [Concomitant]
  5. METOPROLOL [Concomitant]
  6. LESCOL [Concomitant]
  7. NAPROSYN [Concomitant]
  8. VERAPMIL [Concomitant]
  9. CALAN [Concomitant]
  10. NASONEX [Concomitant]
  11. BACTRIM [Concomitant]
  12. CIPRO [Concomitant]
  13. VICODIN [Concomitant]
  14. DIFLUCAN [Concomitant]
  15. TRIAMCINOLONE [Concomitant]
  16. CLOBETASOL PROPIONATE [Concomitant]
  17. FELDENE [Concomitant]
  18. PREVACID [Concomitant]
  19. AMOXICILLIN [Concomitant]
  20. KLOR-CON [Concomitant]
  21. LISINOPRIL [Concomitant]
  22. SIMVASTATIN [Concomitant]
  23. HYDROCHLOROTHIAZIDE [Concomitant]
  24. PIROXICAM [Concomitant]
  25. WARFARIN [Concomitant]
  26. OXYBUTYNIN CL [Concomitant]

REACTIONS (6)
  - ATRIAL FIBRILLATION [None]
  - CARDIAC DISORDER [None]
  - HYPOKALAEMIA [None]
  - INJURY [None]
  - NAUSEA [None]
  - SINUS BRADYCARDIA [None]
